FAERS Safety Report 16535865 (Version 3)
Quarter: 2020Q2

REPORT INFORMATION
  Report Type: Spontaneous
  Country: DE (occurrence: DE)
  Receive Date: 20190705
  Receipt Date: 20200616
  Transmission Date: 20200713
  Serious: Yes (Hospitalization, Other)
  Sender: FDA-Public Use
  Company Number: DE-ALLERGAN-1927537US

PATIENT
  Sex: Female
  Weight: 85 kg

DRUGS (1)
  1. LEVONORGESTREL - BP [Suspect]
     Active Substance: LEVONORGESTREL
     Indication: CONTRACEPTION
     Dosage: 52 MG; AT AN INITIAL RELEASE RATE OF 20 MICROGRAMS/24 HOURS
     Route: 015
     Dates: start: 20181108, end: 2019

REACTIONS (4)
  - Ovarian cyst [Unknown]
  - Pregnancy [Unknown]
  - Device expulsion [Recovered/Resolved]
  - Drug ineffective [Unknown]

NARRATIVE: CASE EVENT DATE: 2019
